FAERS Safety Report 23699871 (Version 1)
Quarter: 2024Q2

REPORT INFORMATION
  Report Type: Spontaneous
  Country: EG (occurrence: EG)
  Receive Date: 20240403
  Receipt Date: 20240403
  Transmission Date: 20240716
  Serious: Yes (Hospitalization, Other)
  Sender: FDA-Public Use
  Company Number: EG-NOVOPROD-1196237

PATIENT
  Age: 478 Month
  Sex: Male
  Weight: 118 kg

DRUGS (4)
  1. TRESIBA [Suspect]
     Active Substance: INSULIN DEGLUDEC
     Indication: Diabetes mellitus
     Dosage: 50 IU, QD (AT 09:00 PM)
     Route: 058
  2. RYBELSUS [Suspect]
     Active Substance: SEMAGLUTIDE
     Indication: Diabetes mellitus
     Dosage: 7 MG, QD (1 TABLET)
     Route: 048
  3. DEPOVIT B12 [Concomitant]
     Indication: Prophylaxis
     Dosage: ONCE WEEKLY
     Route: 030
  4. NOVORAPID [Suspect]
     Active Substance: INSULIN ASPART
     Indication: Diabetes mellitus
     Dosage: 50 IU, QD (30 IU/MORNING AND 20 IU/NIGHT)
     Route: 058

REACTIONS (2)
  - Lower limb fracture [Unknown]
  - Fall [Unknown]
